FAERS Safety Report 4383488-4 (Version None)
Quarter: 2004Q2

REPORT INFORMATION
  Report Type: 
  Country: None (occurrence: None)
  Receive Date: 20040618
  Receipt Date: 20040603
  Transmission Date: 20050107
  Serious: Yes (Death)
  Sender: FDA-Public Use
  Company Number: B0334581A

PATIENT
  Age: 70 Year
  Sex: Male

DRUGS (6)
  1. RETROVIR [Suspect]
     Indication: HIV INFECTION
  2. ZALCITABINE (ZALCITABINE) [Suspect]
     Indication: HIV INFECTION
  3. SAQUINAVIR (SAQUINAVIR) [Suspect]
     Indication: HIV INFECTION
  4. DIDANOSINE (DIDANOSINE) [Suspect]
     Indication: HIV INFECTION
  5. STAVUDINE (STAVUDINE) [Suspect]
     Indication: HIV INFECTION
  6. INDINAVIR SULFATE (INDINAVIR SULFATE) [Suspect]
     Indication: HIV INFECTION

REACTIONS (10)
  - ALANINE AMINOTRANSFERASE INCREASED [None]
  - ANOREXIA [None]
  - CIRCULATORY COLLAPSE [None]
  - DIARRHOEA [None]
  - DYSPNOEA [None]
  - GENERAL PHYSICAL HEALTH DETERIORATION [None]
  - HEPATIC STEATOSIS [None]
  - LACTIC ACIDOSIS [None]
  - LIPODYSTROPHY ACQUIRED [None]
  - NAUSEA [None]
